FAERS Safety Report 19948473 (Version 1)
Quarter: 2021Q4

REPORT INFORMATION
  Report Type: 
  Country: US (occurrence: US)
  Receive Date: 20211012
  Receipt Date: 20211012
  Transmission Date: 20220303
  Serious: No
  Sender: FDA-Public Use
  Company Number: US-C B FLEET CO INC-202011-US-004038

PATIENT
  Sex: Female

DRUGS (1)
  1. MONISTAT 1 COMBINATION PACK [Suspect]
     Active Substance: MICONAZOLE NITRATE
     Indication: Fungal infection
     Dosage: USED FOR ONE NIGHT
     Dates: start: 20201102

REACTIONS (5)
  - Condition aggravated [Recovered/Resolved]
  - Vulvovaginal burning sensation [Recovered/Resolved]
  - Chemical burn of genitalia [Recovered/Resolved]
  - Vulvovaginal exfoliation [Recovered/Resolved]
  - Vaginal erosion [Recovered/Resolved]
